FAERS Safety Report 25310367 (Version 1)
Quarter: 2025Q2

REPORT INFORMATION
  Report Type: Spontaneous
  Country: US (occurrence: US)
  Receive Date: 20250514
  Receipt Date: 20250514
  Transmission Date: 20250717
  Serious: Yes (Other)
  Sender: UNITED THERAPEUTICS
  Company Number: US-UNITED THERAPEUTICS-UNT-2025-015579

PATIENT
  Age: 4 Year

DRUGS (4)
  1. UNITUXIN [Suspect]
     Active Substance: DINUTUXIMAB
     Indication: Neuroblastoma
     Route: 041
  2. ALDESLEUKIN [Suspect]
     Active Substance: ALDESLEUKIN
     Indication: Neuroblastoma
  3. GRANULOCYTE-MACROPHAGE COLONY-STIMULATING FACTOR [Suspect]
     Active Substance: GRANULOCYTE-MACROPHAGE COLONY-STIMULATING FACTOR
     Indication: Neuroblastoma
  4. TRETINOIN [Concomitant]
     Active Substance: TRETINOIN
     Indication: Neuroblastoma

REACTIONS (4)
  - Pleuroparenchymal fibroelastosis [Unknown]
  - Respiratory distress [Unknown]
  - Respiratory syncytial virus infection [Unknown]
  - Adenovirus infection [Unknown]
